FAERS Safety Report 7919071-0 (Version None)
Quarter: 2011Q4

REPORT INFORMATION
  Report Type: 
  Country: None (occurrence: None)
  Receive Date: 20111116
  Receipt Date: 20111107
  Transmission Date: 20120403
  Serious: Yes (Other)
  Sender: FDA-Public Use
  Company Number: CA-ASTRAZENECA-2011SE67460

PATIENT
  Age: 59 Year
  Sex: Male

DRUGS (14)
  1. ALTACE [Concomitant]
     Route: 065
  2. ASAPHEN [Concomitant]
     Route: 065
  3. FOSAMAX [Concomitant]
     Route: 065
  4. ATIVAN [Concomitant]
     Route: 065
  5. MARAVIROC [Concomitant]
     Route: 065
  6. CALCIUM D VITAMIN [Concomitant]
     Route: 065
  7. NORVIR SEC [Concomitant]
     Route: 065
  8. VALTREX [Concomitant]
     Route: 065
  9. FENOFIBRATE [Concomitant]
     Route: 065
  10. TESTOSTERONE [Concomitant]
     Route: 065
  11. ISENTRESS [Concomitant]
     Route: 065
  12. CRESTOR [Suspect]
     Route: 048
  13. SEPTRA DS [Concomitant]
     Route: 065
  14. SYNTHROID [Concomitant]
     Route: 065

REACTIONS (2)
  - DRUG INTERACTION [None]
  - PALPITATIONS [None]
